FAERS Safety Report 24319119 (Version 1)
Quarter: 2024Q3

REPORT INFORMATION
  Report Type: Spontaneous
  Country: ES (occurrence: A1)
  Receive Date: 20240913
  Receipt Date: 20240913
  Transmission Date: 20241016
  Serious: Yes (Life-Threatening, Disabling, Other)
  Sender: BRECKENRIDGE
  Company Number: A1-Breckenridge Pharmaceutical, Inc.-2161574

PATIENT
  Sex: Female

DRUGS (7)
  1. OMEPRAZOLE [Suspect]
     Active Substance: OMEPRAZOLE
  2. BISOPROLOL. [Concomitant]
     Active Substance: BISOPROLOL FUMARATE
  3. MEMANTINE [Concomitant]
     Active Substance: MEMANTINE
  4. LORAZEPAM [Concomitant]
     Active Substance: LORAZEPAM
  5. INDAPAMIDE [Concomitant]
     Active Substance: INDAPAMIDE
  6. SERTRALINE [Concomitant]
     Active Substance: SERTRALINE HYDROCHLORIDE
  7. IRBESARTAN [Concomitant]
     Active Substance: IRBESARTAN

REACTIONS (5)
  - Inappropriate antidiuretic hormone secretion [Recovered/Resolved]
  - Hyponatraemia [Recovered/Resolved]
  - Mobility decreased [Recovered/Resolved]
  - Muscular weakness [Recovered/Resolved]
  - Lethargy [Recovered/Resolved]
